FAERS Safety Report 8802145 (Version 2)
Quarter: 2015Q1

REPORT INFORMATION
  Report Type: Report from Study
  Country: US (occurrence: US)
  Receive Date: 20120921
  Receipt Date: 20150302
  Transmission Date: 20150721
  Serious: Yes (Death)
  Sender: FDA-Public Use
  Company Number: US-ROCHE-1103545

PATIENT
  Sex: Female

DRUGS (6)
  1. ALIMTA [Concomitant]
     Active Substance: PEMETREXED DISODIUM
     Route: 065
  2. AVASTIN [Suspect]
     Active Substance: BEVACIZUMAB
     Indication: BREAST CANCER FEMALE
     Route: 065
     Dates: start: 20050214
  3. GEMZAR [Concomitant]
     Active Substance: GEMCITABINE HYDROCHLORIDE
  4. 5-FLUOROURACIL [Concomitant]
     Active Substance: FLUOROURACIL
  5. CISPLATIN. [Concomitant]
     Active Substance: CISPLATIN
     Route: 065
  6. LEUCOVORIN [Concomitant]
     Active Substance: LEUCOVORIN

REACTIONS (4)
  - Liver disorder [Unknown]
  - Off label use [Unknown]
  - Death [Fatal]
  - Disease progression [Unknown]
